FAERS Safety Report 18415582 (Version 1)
Quarter: 2020Q4

REPORT INFORMATION
  Report Type: Spontaneous
  Country: US (occurrence: US)
  Receive Date: 20201022
  Receipt Date: 20201022
  Transmission Date: 20210114
  Serious: Yes (Hospitalization, Other)
  Sender: FDA-Public Use
  Company Number: US-ABBVIE-20K-163-3613984-00

PATIENT
  Age: 50 Year
  Sex: Male
  Weight: 80.81 kg

DRUGS (15)
  1. TRAZODONE [Concomitant]
     Active Substance: TRAZODONE HYDROCHLORIDE
     Indication: POST-TRAUMATIC STRESS DISORDER
  2. MINIPRESS [Concomitant]
     Active Substance: PRAZOSIN HYDROCHLORIDE
     Indication: POST-TRAUMATIC STRESS DISORDER
  3. XANAX [Concomitant]
     Active Substance: ALPRAZOLAM
     Indication: ANXIETY
  4. CYMBALTA [Concomitant]
     Active Substance: DULOXETINE HYDROCHLORIDE
     Indication: DEPRESSION
  5. NICOTINE. [Concomitant]
     Active Substance: NICOTINE
     Indication: EX-TOBACCO USER
  6. REXULTI [Concomitant]
     Active Substance: BREXPIPRAZOLE
     Indication: DEPRESSION
  7. HUMIRA [Suspect]
     Active Substance: ADALIMUMAB
     Indication: CROHN^S DISEASE
     Route: 058
     Dates: start: 2018
  8. DICYCLOMINE [Concomitant]
     Active Substance: DICYCLOMINE HYDROCHLORIDE
     Indication: ABDOMINAL RIGIDITY
  9. DIAZEPAM. [Concomitant]
     Active Substance: DIAZEPAM
     Indication: POST-TRAUMATIC STRESS DISORDER
  10. NICOTINE. [Concomitant]
     Active Substance: NICOTINE
     Indication: EX-TOBACCO USER
  11. ADDERALL [Concomitant]
     Active Substance: AMPHETAMINE ASPARTATE\AMPHETAMINE SULFATE\DEXTROAMPHETAMINE SACCHARATE\DEXTROAMPHETAMINE SULFATE
     Indication: POST-TRAUMATIC STRESS DISORDER
  12. MORPHINE [Concomitant]
     Active Substance: MORPHINE
     Indication: BACK PAIN
  13. LISINOPRIL. [Concomitant]
     Active Substance: LISINOPRIL
     Indication: HYPERTENSION
  14. MORPHINE [Concomitant]
     Active Substance: MORPHINE
     Indication: ARTHRALGIA
     Dosage: EXTENDED RELEASE
  15. CIALIS [Concomitant]
     Active Substance: TADALAFIL
     Indication: SUPPLEMENTATION THERAPY

REACTIONS (13)
  - Weight decreased [Recovering/Resolving]
  - Diarrhoea [Not Recovered/Not Resolved]
  - Gingivitis [Recovering/Resolving]
  - Hernia [Not Recovered/Not Resolved]
  - Skin irritation [Not Recovered/Not Resolved]
  - Mucous stools [Not Recovered/Not Resolved]
  - Abdominal pain lower [Not Recovered/Not Resolved]
  - Road traffic accident [Unknown]
  - Barrett^s oesophagus [Recovering/Resolving]
  - Axillary mass [Recovering/Resolving]
  - Pneumonia [Not Recovered/Not Resolved]
  - Haematochezia [Not Recovered/Not Resolved]
  - Wrist fracture [Recovered/Resolved]

NARRATIVE: CASE EVENT DATE: 2018
